FAERS Safety Report 14479047 (Version 1)
Quarter: 2018Q1

REPORT INFORMATION
  Report Type: Spontaneous
  Country: FR (occurrence: FR)
  Receive Date: 20180202
  Receipt Date: 20180202
  Transmission Date: 20180509
  Serious: Yes (Other)
  Sender: FDA-Public Use
  Company Number: FR-MERCK KGAA-2041262

PATIENT
  Age: 76 Year
  Sex: Male

DRUGS (12)
  1. AMLODIPINE [Concomitant]
     Active Substance: AMLODIPINE BESYLATE
  2. ESCITALOPRAM [Concomitant]
     Active Substance: ESCITALOPRAM OXALATE
  3. VALSARTAN. [Concomitant]
     Active Substance: VALSARTAN
  4. XANAX [Concomitant]
     Active Substance: ALPRAZOLAM
  5. MODURETIC(MODURETIC) [Concomitant]
  6. NOVOTHYROX [Suspect]
     Active Substance: LEVOTHYROXINE SODIUM
     Indication: POST PROCEDURAL HYPOTHYROIDISM
  7. SEROPLEX [Concomitant]
     Active Substance: ESCITALOPRAM OXALATE
  8. AMILORIDE [Concomitant]
     Active Substance: AMILORIDE
  9. HYDROCHLOROTHIAZIDE. [Concomitant]
     Active Substance: HYDROCHLOROTHIAZIDE
  10. MODAMIDE [Concomitant]
     Active Substance: AMILORIDE HYDROCHLORIDE
  11. EUTHYROX [Concomitant]
     Active Substance: LEVOTHYROXINE SODIUM
  12. ALPRAZOLAM. [Concomitant]
     Active Substance: ALPRAZOLAM

REACTIONS (9)
  - Increased bronchial secretion [None]
  - Hyperkalaemia [None]
  - Gastrointestinal disorder [Recovering/Resolving]
  - Duodenal ulcer [None]
  - Oesophagitis [None]
  - Muscle spasms [Not Recovered/Not Resolved]
  - Paraesthesia [Not Recovered/Not Resolved]
  - Myalgia [Not Recovered/Not Resolved]
  - Gastritis [None]

NARRATIVE: CASE EVENT DATE: 2017
